FAERS Safety Report 13388931 (Version 11)
Quarter: 2018Q1

REPORT INFORMATION
  Report Type: Spontaneous
  Country: CA (occurrence: CA)
  Receive Date: 20170330
  Receipt Date: 20180321
  Transmission Date: 20180508
  Serious: Yes (Hospitalization, Other)
  Sender: FDA-Public Use
  Company Number: CA-CELLTRION INC.-2017CA003740

PATIENT

DRUGS (8)
  1. INFLECTRA [Suspect]
     Active Substance: INFLIXIMAB-DYYB
     Indication: POLYCHONDRITIS
     Dosage: 500 MG, CYCLIC EVERY 6 WEEKS FOR 12 MONTHS
     Route: 042
  2. INFLECTRA [Suspect]
     Active Substance: INFLIXIMAB-DYYB
     Dosage: UNK
  3. INFLECTRA [Suspect]
     Active Substance: INFLIXIMAB-DYYB
     Dosage: 500 MG, CYCLIC EVERY 6 WEEKS FOR 12 MONTHS
     Route: 042
     Dates: start: 20171208
  4. VALACYCLOVIR [Concomitant]
     Active Substance: VALACYCLOVIR HYDROCHLORIDE
     Dosage: 1000.00 MG, TID
  5. PREDNISONE. [Concomitant]
     Active Substance: PREDNISONE
     Dosage: 10- 15 MG
     Route: 048
  6. ALENDRONATE [Concomitant]
     Active Substance: ALENDRONATE SODIUM
     Dosage: 40 MG, UNK
     Dates: start: 201404
  7. ALENDRONATE [Concomitant]
     Active Substance: ALENDRONATE SODIUM
     Dosage: 70 MG, UNK
  8. INFLECTRA [Suspect]
     Active Substance: INFLIXIMAB-DYYB
     Indication: IRITIS
     Dosage: 300 MG, CYCLIC (0, 2, 6 WEEKS THEN EVERY 8 WEEKS FOR 12 MONTHS
     Route: 042
     Dates: start: 20160504

REACTIONS (10)
  - Nasopharyngitis [Not Recovered/Not Resolved]
  - Disease recurrence [Recovered/Resolved]
  - Arthralgia [Unknown]
  - Weight fluctuation [Unknown]
  - Skin disorder [Recovering/Resolving]
  - Weight decreased [Unknown]
  - Drug ineffective for unapproved indication [Unknown]
  - Joint stiffness [Unknown]
  - Polychondritis [Recovered/Resolved]
  - Product use issue [Unknown]

NARRATIVE: CASE EVENT DATE: 201702
